FAERS Safety Report 6942353-6 (Version None)
Quarter: 2010Q3

REPORT INFORMATION
  Report Type: 
  Country: None (occurrence: None)
  Receive Date: 20100826
  Receipt Date: 20100817
  Transmission Date: 20110219
  Serious: Yes (Hospitalization)
  Sender: FDA-Public Use
  Company Number: NL-AMGEN-QUU432035

PATIENT
  Sex: Female

DRUGS (2)
  1. NEULASTA [Suspect]
     Indication: CHEMOTHERAPY
  2. UNSPECIFIED ANTINEOPLASTIC AGENT [Concomitant]
     Route: 042

REACTIONS (5)
  - ASTHENIA [None]
  - FEELING ABNORMAL [None]
  - MALAISE [None]
  - PYREXIA [None]
  - WHITE BLOOD CELL COUNT DECREASED [None]
